FAERS Safety Report 5902331-2 (Version None)
Quarter: 2008Q3

REPORT INFORMATION
  Report Type: 
  Country: None (occurrence: None)
  Receive Date: 20080919
  Receipt Date: 20080804
  Transmission Date: 20090109
  Serious: No
  Sender: FDA-Public Use
  Company Number: US-WYE-H05390808

PATIENT
  Age: 34 Year
  Sex: Female
  Weight: 79.9 kg

DRUGS (1)
  1. PRISTIQ [Suspect]
     Indication: ANXIETY
     Dosage: 50 MG 1X PER 1 DAY, ORAL
     Route: 048
     Dates: start: 20080802, end: 20080802

REACTIONS (4)
  - BURNING SENSATION [None]
  - FEELING HOT [None]
  - MIDDLE INSOMNIA [None]
  - PALPITATIONS [None]
